FAERS Safety Report 12875812 (Version 1)
Quarter: 2016Q4

REPORT INFORMATION
  Report Type: Spontaneous
  Country: US (occurrence: US)
  Receive Date: 20161020
  Receipt Date: 20161020
  Transmission Date: 20170207
  Serious: No
  Sender: FDA-Public Use
  Company Number: None

PATIENT
  Age: 51 Year
  Sex: Female

DRUGS (1)
  1. HUMIRA [Suspect]
     Active Substance: ADALIMUMAB
     Indication: CROHN^S DISEASE
     Dosage: 40MG/.8ML EVERY 14 DAYS
     Dates: start: 20160621, end: 20160917

REACTIONS (2)
  - Infection [None]
  - Swelling face [None]

NARRATIVE: CASE EVENT DATE: 20160917
